FAERS Safety Report 8211816-8 (Version None)
Quarter: 2012Q1

REPORT INFORMATION
  Report Type: 
  Country: None (occurrence: None)
  Receive Date: 20120315
  Receipt Date: 20120312
  Transmission Date: 20120608
  Serious: No
  Sender: FDA-Public Use
  Company Number: US-PFIZER INC-2012066282

PATIENT
  Sex: Male
  Weight: 64.853 kg

DRUGS (6)
  1. CELEBREX [Suspect]
     Indication: OEDEMA PERIPHERAL
  2. CELEBREX [Suspect]
     Indication: PAIN
     Dosage: 200 MG, DAILY AS NEEDED
  3. TAMSULOSIN HYDROCHLORIDE [Concomitant]
     Indication: PROSTATE EXAMINATION ABNORMAL
     Dosage: UNK
  4. CELEBREX [Suspect]
     Indication: JOINT SWELLING
  5. CELEBREX [Suspect]
  6. FINASTERIDE [Concomitant]
     Indication: PROSTATE EXAMINATION ABNORMAL
     Dosage: UNK

REACTIONS (3)
  - EXPIRED DRUG ADMINISTERED [None]
  - DRUG EFFECT DECREASED [None]
  - ARTHRITIS [None]
